FAERS Safety Report 8510182-8 (Version None)
Quarter: 2012Q3

REPORT INFORMATION
  Report Type: 
  Country: None (occurrence: None)
  Receive Date: 20120713
  Receipt Date: 20120706
  Transmission Date: 20120928
  Serious: Yes (Hospitalization)
  Sender: FDA-Public Use
  Company Number: US-US-EMD SERONO, INC.-7033760

PATIENT
  Sex: Male

DRUGS (9)
  1. SIMVASTATIN [Concomitant]
     Indication: BLOOD CHOLESTEROL INCREASED
  2. CRESTOR [Concomitant]
     Indication: BLOOD CHOLESTEROL INCREASED
     Dates: start: 20101201
  3. TIZANIDINE HYDROCHLORIDE [Concomitant]
     Indication: PRODUCT USED FOR UNKNOWN INDICATION
     Dates: start: 20100608, end: 20101105
  4. LYRICA [Concomitant]
     Indication: PAIN
     Dates: start: 20100115
  5. AMANTADINE HCL [Concomitant]
     Indication: FATIGUE
  6. CYMBALTA [Concomitant]
     Indication: PAIN
     Dates: start: 20100115
  7. REBIF [Suspect]
     Indication: MULTIPLE SCLEROSIS
     Route: 058
     Dates: start: 20071115, end: 20110107
  8. NORVASC [Concomitant]
     Indication: HYPERTENSION
     Dates: start: 20101025, end: 20110107
  9. AMANTADINE HCL [Concomitant]
     Indication: MULTIPLE SCLEROSIS

REACTIONS (2)
  - ACUTE MYOCARDIAL INFARCTION [None]
  - CORONARY ARTERY STENOSIS [None]
